FAERS Safety Report 5165753-6 (Version None)
Quarter: 2006Q4

REPORT INFORMATION
  Report Type: 
  Country: None (occurrence: None)
  Receive Date: 20061128
  Receipt Date: 20061113
  Transmission Date: 20070319
  Serious: Yes (Hospitalization)
  Sender: FDA-Public Use
  Company Number: GXKR2006TW07351

PATIENT
  Age: 70 Year
  Sex: Female

DRUGS (5)
  1. VANCOMYCIN [Suspect]
     Indication: INFECTION
  2. METRONIDAZOLE [Suspect]
     Indication: INFECTION
  3. FLUCONAZOLE [Suspect]
     Indication: INFECTION
  4. CEFEPIME [Suspect]
     Indication: INFECTION
  5. CHEMOTHERAPEUTICS, OTHER (CHEMOTHERAPEUTICS, OTHER) [Concomitant]

REACTIONS (3)
  - CLOSTRIDIUM DIFFICILE COLITIS [None]
  - OCCULT BLOOD POSITIVE [None]
  - PYREXIA [None]
